FAERS Safety Report 8558167-X (Version None)
Quarter: 2012Q2

REPORT INFORMATION
  Report Type: 
  Country: None (occurrence: None)
  Receive Date: 20120418
  Receipt Date: 20080806
  Transmission Date: 20120825
  Serious: Yes (Hospitalization)
  Sender: FDA-Public Use
  Company Number: PHEH2008US06915

PATIENT
  Sex: Male

DRUGS (1)
  1. DIOVAN HCT [Suspect]
     Indication: HYPERTENSION
     Dosage: 80MG VAL, 12.5MG HCT, QD, ORAL
     Route: 048
     Dates: start: 20070101, end: 20080401

REACTIONS (2)
  - BLOOD URIC ACID INCREASED [None]
  - MUSCULOSKELETAL PAIN [None]
